FAERS Safety Report 8553513-5 (Version None)
Quarter: 2012Q3

REPORT INFORMATION
  Report Type: 
  Country: None (occurrence: None)
  Receive Date: 20120719
  Receipt Date: 20120704
  Transmission Date: 20120928
  Serious: Yes (Hospitalization, Other)
  Sender: FDA-Public Use
  Company Number: MCA-N-12-084

PATIENT
  Age: 26 Year
  Sex: Female

DRUGS (1)
  1. OLANZAPINE [Suspect]
     Indication: PSYCHOMOTOR HYPERACTIVITY

REACTIONS (12)
  - CATATONIA [None]
  - LOGORRHOEA [None]
  - STUPOR [None]
  - CHOREA [None]
  - COPROLALIA [None]
  - NEGATIVISM [None]
  - NEUTROPENIA [None]
  - COGNITIVE DISORDER [None]
  - IMPULSIVE BEHAVIOUR [None]
  - CRYING [None]
  - AGGRESSION [None]
  - MOTOR DYSFUNCTION [None]
